FAERS Safety Report 13668691 (Version 3)
Quarter: 2018Q4

REPORT INFORMATION
  Report Type: Report from Study
  Country: FR (occurrence: FR)
  Receive Date: 20170620
  Receipt Date: 20181114
  Transmission Date: 20190204
  Serious: Yes (Hospitalization)
  Sender: FDA-Public Use
  Company Number: FR-PFIZER INC-2017069833

PATIENT
  Age: 70 Year
  Sex: Male
  Weight: 89 kg

DRUGS (5)
  1. SUTENT [Suspect]
     Active Substance: SUNITINIB MALATE
     Dosage: 50 MG, DAILY (4 WEEKS ON, 2 WEEKS OFF)
     Route: 048
     Dates: start: 20170109
  2. XARELTO [Concomitant]
     Active Substance: RIVAROXABAN
  3. SUTENT [Suspect]
     Active Substance: SUNITINIB MALATE
     Dosage: 50 MG, DAILY (4 WEEKS ON, 2 WEEKS OFF)
     Route: 048
     Dates: start: 20161121
  4. SUTENT [Suspect]
     Active Substance: SUNITINIB MALATE
     Indication: METASTATIC RENAL CELL CARCINOMA
     Dosage: UNK
     Route: 048
     Dates: start: 20161010
  5. SUTENT [Suspect]
     Active Substance: SUNITINIB MALATE
     Dosage: 50 MG, CYCLIC (2 WEEKS ON, 1 WEEK OFF)
     Dates: start: 20170210, end: 20170323

REACTIONS (9)
  - Anti-platelet antibody positive [Recovered/Resolved]
  - Mucosal inflammation [Recovered/Resolved]
  - Asthenia [Recovered/Resolved]
  - Abdominal pain [Recovered/Resolved]
  - Thrombocytopenia [Recovered/Resolved]
  - Blood thyroid stimulating hormone increased [Recovered/Resolved]
  - Epistaxis [Recovered/Resolved]
  - Anaemia [Recovered/Resolved]
  - Hypertension [Not Recovered/Not Resolved]

NARRATIVE: CASE EVENT DATE: 20161010
